FAERS Safety Report 18396398 (Version 3)
Quarter: 2021Q2

REPORT INFORMATION
  Report Type: Spontaneous
  Country: GB (occurrence: GB)
  Receive Date: 20201019
  Receipt Date: 20210607
  Transmission Date: 20210717
  Serious: Yes (Death, Other)
  Sender: FDA-Public Use
  Company Number: GB-AUROBINDO-AUR-APL-2020-052457

PATIENT
  Age: 68 Year
  Sex: Male

DRUGS (8)
  1. BISOPROLOL FUMARATE FILM?COATED TABLETS 2.5MG [Suspect]
     Active Substance: BISOPROLOL FUMARATE
     Dosage: BISOPROLOL 2.5 MG UNKNOWN
     Route: 065
  2. OMEPRAZOLE. [Suspect]
     Active Substance: OMEPRAZOLE
     Dosage: OMEPRAZOLE 20 MG UNKNOWN
     Route: 065
  3. ASPIRIN. [Suspect]
     Active Substance: ASPIRIN
     Dosage: ACETYLSALICYLIC ACID 75 MG UNKNOWN
     Route: 065
  4. BISOPROLOL FUMARATE FILM?COATED TABLETS 2.5MG [Suspect]
     Active Substance: BISOPROLOL FUMARATE
     Indication: PRODUCT USED FOR UNKNOWN INDICATION
     Dosage: UNK
     Route: 065
  5. ATORVASTATIN FILM?COATED TABLETS 20MG [Suspect]
     Active Substance: ATORVASTATIN
     Dosage: ATORVASTATIN 20 MG UNKNOWN
     Route: 065
  6. ATORVASTATIN FILM?COATED TABLETS 20MG [Suspect]
     Active Substance: ATORVASTATIN
     Indication: PRODUCT USED FOR UNKNOWN INDICATION
     Dosage: UNK MILLIGRAM
     Route: 065
  7. ASPIRIN. [Suspect]
     Active Substance: ASPIRIN
     Indication: PRODUCT USED FOR UNKNOWN INDICATION
     Dosage: UNK
     Route: 065
  8. OMEPRAZOLE. [Suspect]
     Active Substance: OMEPRAZOLE
     Indication: PRODUCT USED FOR UNKNOWN INDICATION
     Dosage: UNK
     Route: 065

REACTIONS (4)
  - Product storage error [Fatal]
  - Death [Fatal]
  - Product dispensing error [Fatal]
  - Product dose omission issue [Fatal]

NARRATIVE: CASE EVENT DATE: 20200424
